FAERS Safety Report 4344428-7 (Version None)
Quarter: 2004Q2

REPORT INFORMATION
  Report Type: 
  Country: None (occurrence: None)
  Receive Date: 20040421
  Receipt Date: 20040421
  Transmission Date: 20050107
  Serious: Yes (Other)
  Sender: FDA-Public Use
  Company Number: None

PATIENT
  Age: 56 Year
  Sex: Male

DRUGS (7)
  1. PRAVASTATIN [Suspect]
     Dosage: 40 QD PO
     Route: 048
     Dates: start: 20040114, end: 20040213
  2. HYDROCHLOROTHIAZIDE [Suspect]
     Dosage: 25 MG QD PO
     Route: 048
  3. NTG SL [Concomitant]
  4. ROFECOXIB [Concomitant]
  5. FOLIC ACID [Concomitant]
  6. ASPIRIN [Concomitant]
  7. RABEPRAZOLE SODIUM [Concomitant]

REACTIONS (1)
  - ARTHRALGIA [None]
